FAERS Safety Report 6423586-4 (Version None)
Quarter: 2009Q4

REPORT INFORMATION
  Report Type: 
  Country: None (occurrence: None)
  Receive Date: 20091028
  Receipt Date: 20091012
  Transmission Date: 20100525
  Serious: Yes (Other)
  Sender: FDA-Public Use
  Company Number: 1000009596

PATIENT
  Age: 32 Year
  Sex: Female

DRUGS (2)
  1. ESCITALOPRAM [Suspect]
     Indication: DEPRESSION
     Dosage: 10 MG (10 MG),ORAL
     Route: 048
  2. METOCLOPRAMIDE [Suspect]
     Indication: MIGRAINE
     Dosage: INTRAVENOUS BOLUS
     Route: 040

REACTIONS (10)
  - BLOOD PRESSURE INCREASED [None]
  - DRUG INTERACTION [None]
  - DRY MOUTH [None]
  - HYPERHIDROSIS [None]
  - MUSCLE DISORDER [None]
  - OCULOGYRIC CRISIS [None]
  - PSYCHOMOTOR HYPERACTIVITY [None]
  - SEROTONIN SYNDROME [None]
  - TACHYCARDIA [None]
  - TENSION [None]
